FAERS Safety Report 23890560 (Version 1)
Quarter: 2024Q2

REPORT INFORMATION
  Report Type: Spontaneous
  Country: GR (occurrence: GR)
  Receive Date: 20240523
  Receipt Date: 20240523
  Transmission Date: 20240716
  Serious: Yes (Hospitalization, Other)
  Sender: FDA-Public Use
  Company Number: GR-SANDOZ-SDZ2024GR049618

PATIENT

DRUGS (19)
  1. RUXOLITINIB [Suspect]
     Active Substance: RUXOLITINIB
     Indication: Product used for unknown indication
     Dosage: 40 MG, QD (20 MG, BID)
     Route: 065
     Dates: start: 20210514
  2. RUXOLITINIB [Suspect]
     Active Substance: RUXOLITINIB
     Dosage: 40 MG, QD (20 MG, BID)
     Route: 065
     Dates: start: 20210528
  3. RUXOLITINIB [Suspect]
     Active Substance: RUXOLITINIB
     Dosage: 40 MG, QD (20 MG, BID)
     Route: 065
     Dates: start: 20210611
  4. RUXOLITINIB [Suspect]
     Active Substance: RUXOLITINIB
     Dosage: 30 MG, QD (15 MG, BID)
     Route: 065
     Dates: start: 20210625
  5. RUXOLITINIB [Suspect]
     Active Substance: RUXOLITINIB
     Dosage: 30 MG, QD (15 MG, BID)
     Route: 065
     Dates: start: 20210803
  6. RUXOLITINIB [Suspect]
     Active Substance: RUXOLITINIB
     Dosage: 30 MG, QD (15 MG, BID)
     Route: 065
     Dates: start: 20211001
  7. RUXOLITINIB [Suspect]
     Active Substance: RUXOLITINIB
     Dosage: 30 MG, QD (15 MG, BID)
     Route: 065
     Dates: start: 20211103
  8. RUXOLITINIB [Suspect]
     Active Substance: RUXOLITINIB
     Dosage: 40 MG, QD (20 MG, BID)
     Route: 065
     Dates: start: 20211215
  9. RUXOLITINIB [Suspect]
     Active Substance: RUXOLITINIB
     Dosage: 40 MG, QD (20 MG, BID)
     Route: 065
     Dates: start: 20220211
  10. RUXOLITINIB [Suspect]
     Active Substance: RUXOLITINIB
     Dosage: 40 MG, QD (20 MG, BID)
     Route: 065
     Dates: start: 20220222
  11. RUXOLITINIB [Suspect]
     Active Substance: RUXOLITINIB
     Dosage: 30 MG, QD (15 MG, BID)
     Route: 065
     Dates: start: 20220429
  12. RUXOLITINIB [Suspect]
     Active Substance: RUXOLITINIB
     Dosage: 30 MG, QD (15 MG, BID)
     Route: 065
     Dates: start: 20220708
  13. RUXOLITINIB [Suspect]
     Active Substance: RUXOLITINIB
     Dosage: 30 MG, QD (15 MG, BID)
     Route: 065
     Dates: start: 20230320
  14. RUXOLITINIB [Suspect]
     Active Substance: RUXOLITINIB
     Dosage: 40 MG, QD (20 MG, BID)
     Route: 065
     Dates: start: 20230831
  15. RUXOLITINIB [Suspect]
     Active Substance: RUXOLITINIB
     Dosage: 10 MG, QD (5 MG, BID)
     Route: 065
     Dates: start: 202308, end: 202310
  16. EPOETIN ALFA [Suspect]
     Active Substance: ERYTHROPOIETIN
     Indication: Product used for unknown indication
     Dosage: UNK UNK, QW
     Route: 058
     Dates: start: 20220429
  17. HYDROXYUREA [Concomitant]
     Active Substance: HYDROXYUREA
     Indication: Product used for unknown indication
     Dosage: UNK
     Route: 065
     Dates: start: 2003, end: 2007
  18. HYDROXYUREA [Concomitant]
     Active Substance: HYDROXYUREA
     Dosage: 1 G, QD
     Route: 065
     Dates: start: 20210420
  19. ANAGRELIDE [Concomitant]
     Active Substance: ANAGRELIDE
     Indication: Product used for unknown indication
     Dosage: UNK
     Route: 065
     Dates: start: 2007, end: 202104

REACTIONS (4)
  - COVID-19 pneumonia [Unknown]
  - Albuminuria [Unknown]
  - Myelofibrosis [Unknown]
  - Urinary tract infection [Unknown]
